FAERS Safety Report 5480288-9 (Version None)
Quarter: 2007Q4

REPORT INFORMATION
  Report Type: 
  Country: None (occurrence: None)
  Receive Date: 20071003
  Receipt Date: 20070921
  Transmission Date: 20080405
  Serious: Yes (Death)
  Sender: FDA-Public Use
  Company Number: 2007SP018435

PATIENT
  Age: 61 Year
  Sex: Female

DRUGS (2)
  1. PEG-INTRON [Suspect]
     Indication: HEPATITIS C
     Dosage: SC
     Route: 058
  2. REBETOL [Suspect]
     Indication: HEPATITIS C
     Dosage: PO
     Route: 048

REACTIONS (8)
  - DIARRHOEA [None]
  - DISSEMINATED INTRAVASCULAR COAGULATION [None]
  - MULTI-ORGAN FAILURE [None]
  - PLATELET COUNT DECREASED [None]
  - PNEUMOCOCCAL SEPSIS [None]
  - RESPIRATORY ARREST [None]
  - VENTRICULAR FIBRILLATION [None]
  - WHITE BLOOD CELL COUNT DECREASED [None]
